FAERS Safety Report 10098113 (Version 1)
Quarter: 2014Q2

REPORT INFORMATION
  Report Type: Spontaneous
  Country: GB (occurrence: None)
  Receive Date: 20140421
  Receipt Date: 20140421
  Transmission Date: 20141212
  Serious: Yes (Other)
  Sender: FDA-Public Use
  Company Number: 2293655

PATIENT
  Sex: 0

DRUGS (2)
  1. GENTAMICIN SULFATE [Suspect]
     Indication: ANTIBIOTIC PROPHYLAXIS
     Dosage: NOT REPORTED, UNKNOWN
  2. FLUCLOXACILLIN [Suspect]
     Indication: ANTIBIOTIC PROPHYLAXIS
     Dosage: 2 G GRAM(S), UNKNOWN

REACTIONS (3)
  - Renal failure acute [None]
  - Drug interaction [None]
  - Post procedural complication [None]
